FAERS Safety Report 5277140-0 (Version None)
Quarter: 2007Q1

REPORT INFORMATION
  Report Type: 
  Country: None (occurrence: None)
  Receive Date: 20061213
  Receipt Date: 20050407
  Transmission Date: 20070707
  Serious: Yes (Life-Threatening, Hospitalization)
  Sender: FDA-Public Use
  Company Number: 2005UW01434

PATIENT
  Age: 63 Year
  Sex: Male

DRUGS (7)
  1. SEROQUEL [Suspect]
     Indication: MANIA
     Dosage: 300 MG HS PO
     Route: 048
     Dates: start: 20040727, end: 20050113
  2. LEXAPRO [Concomitant]
  3. LISINOPRIL [Concomitant]
  4. NEXIUM [Concomitant]
  5. CLARITIN [Concomitant]
  6. HYDROCHLOROTHIAZIDE [Concomitant]
  7. HUMIBID [Concomitant]

REACTIONS (3)
  - NEUROLEPTIC MALIGNANT SYNDROME [None]
  - RENAL FAILURE ACUTE [None]
  - RHABDOMYOLYSIS [None]
